FAERS Safety Report 8631576 (Version 2)
Quarter: 2012Q4

REPORT INFORMATION
  Report Type: 
  Country: US (occurrence: US)
  Receive Date: 20120625
  Receipt Date: 20120906
  Transmission Date: 20130627
  Serious: Yes (Hospitalization, Other)
  Sender: FDA-Public Use
  Company Number: US-BIOGENIDEC-2012BI022032

PATIENT
  Age: 58 None
  Sex: Female

DRUGS (2)
  1. AVONEX [Suspect]
     Indication: MULTIPLE SCLEROSIS
     Route: 030
  2. AVONEX [Suspect]
     Indication: MULTIPLE SCLEROSIS
     Route: 030
     Dates: start: 201106

REACTIONS (8)
  - Endocarditis [Not Recovered/Not Resolved]
  - Clostridium difficile infection [Unknown]
  - Thrombosis [Unknown]
  - Apparent death [Unknown]
  - Multiple sclerosis relapse [Not Recovered/Not Resolved]
  - Amnesia [Unknown]
  - Skin reaction [Unknown]
  - Skin discolouration [Unknown]
